FAERS Safety Report 7955214-0 (Version None)
Quarter: 2011Q4

REPORT INFORMATION
  Report Type: 
  Country: None (occurrence: None)
  Receive Date: 20111202
  Receipt Date: 20111130
  Transmission Date: 20120403
  Serious: Yes (Death)
  Sender: FDA-Public Use
  Company Number: US-CELGENEUS-163-21880-11092728

PATIENT
  Sex: Male

DRUGS (5)
  1. ZOMETA [Concomitant]
     Indication: MULTIPLE MYELOMA
     Dosage: 4 MILLIGRAM
     Route: 041
     Dates: start: 20101101, end: 20110801
  2. DECADRON [Concomitant]
     Indication: MULTIPLE MYELOMA
     Dosage: 40 MILLIGRAM
     Route: 048
     Dates: start: 20101101, end: 20110801
  3. VELCADE [Concomitant]
     Indication: MULTIPLE MYELOMA
     Dosage: 2.8 MILLIGRAM
     Route: 041
     Dates: start: 20101101, end: 20110801
  4. EXJADE [Concomitant]
     Indication: MULTIPLE MYELOMA
     Dosage: 1500 MILLIGRAM
     Route: 048
     Dates: start: 20110707
  5. REVLIMID [Suspect]
     Indication: MULTIPLE MYELOMA
     Dosage: 10 MILLIGRAM
     Route: 048
     Dates: start: 20101119, end: 20110801

REACTIONS (1)
  - MULTIPLE MYELOMA [None]
